FAERS Safety Report 5524606-1 (Version None)
Quarter: 2007Q4

REPORT INFORMATION
  Report Type: 
  Country: None (occurrence: None)
  Receive Date: 20071123
  Receipt Date: 20071119
  Transmission Date: 20080405
  Serious: Yes (Other)
  Sender: FDA-Public Use
  Company Number: JP-BAYER-200716856GDS

PATIENT
  Age: 71 Year
  Sex: Male

DRUGS (5)
  1. ASPIRIN [Suspect]
     Indication: MYOCARDIAL INFARCTION
  2. ASPIRIN [Suspect]
  3. TICLOPIDINE [Suspect]
     Indication: MYOCARDIAL INFARCTION
     Route: 065
  4. CLOPIDOGREL [Suspect]
     Indication: MYOCARDIAL INFARCTION
     Route: 065
  5. CLOPIDOGREL [Suspect]
     Route: 065

REACTIONS (2)
  - LIVER DISORDER [None]
  - THROMBOSIS IN DEVICE [None]
